FAERS Safety Report 9265627 (Version 1)
Quarter: 2013Q2

REPORT INFORMATION
  Report Type: Report from Study
  Country: US (occurrence: US)
  Receive Date: 20130501
  Receipt Date: 20130501
  Transmission Date: 20140414
  Serious: Yes (Other)
  Sender: FDA-Public Use
  Company Number: US-ABBOTT-13P-163-1080254-00

PATIENT
  Age: 75 Year
  Sex: Female

DRUGS (7)
  1. HUMIRA [Suspect]
     Indication: RHEUMATOID ARTHRITIS
  2. SYNTHROID [Concomitant]
     Indication: THYROIDECTOMY
     Dosage: 175 MCG DAILY
  3. ATENOLOL [Concomitant]
     Indication: BLOOD PRESSURE
  4. AZOR [Concomitant]
     Indication: BLOOD PRESSURE
     Dosage: 10/20 MG DAILY
  5. NEXIUM [Concomitant]
     Indication: GASTROOESOPHAGEAL REFLUX DISEASE
  6. MECLIZINE [Concomitant]
     Indication: DIZZINESS
  7. TYLENOL ARTHRITIS [Concomitant]
     Indication: RHEUMATOID ARTHRITIS

REACTIONS (7)
  - Renal failure [Recovering/Resolving]
  - Basal cell carcinoma [Recovering/Resolving]
  - Squamous cell carcinoma [Recovering/Resolving]
  - Squamous cell carcinoma [Recovering/Resolving]
  - Basal cell carcinoma [Recovering/Resolving]
  - Squamous cell carcinoma [Recovering/Resolving]
  - Squamous cell carcinoma [Recovering/Resolving]
